FAERS Safety Report 8256162 (Version 4)
Quarter: 2012Q4

REPORT INFORMATION
  Report Type: 
  Country: US (occurrence: US)
  Receive Date: 20111121
  Receipt Date: 20121228
  Transmission Date: 20130627
  Serious: Yes (Hospitalization, Other)
  Sender: FDA-Public Use
  Company Number: US-US-EMD SERONO, INC.-7095499

PATIENT
  Age: 68 None
  Sex: Female

DRUGS (3)
  1. REBIF [Suspect]
     Indication: MULTIPLE SCLEROSIS
     Route: 058
     Dates: start: 20030406, end: 201112
  2. REBIF [Suspect]
     Route: 058
     Dates: start: 201112, end: 20121215
  3. CYMBALTA [Concomitant]
     Indication: DEPRESSION

REACTIONS (5)
  - Transient ischaemic attack [Unknown]
  - Osteonecrosis [Not Recovered/Not Resolved]
  - Arthritis [Not Recovered/Not Resolved]
  - Osteoporosis [Not Recovered/Not Resolved]
  - Muscle spasms [Unknown]
